FAERS Safety Report 7417779-7 (Version None)
Quarter: 2011Q2

REPORT INFORMATION
  Report Type: 
  Country: None (occurrence: None)
  Receive Date: 20110415
  Receipt Date: 20110331
  Transmission Date: 20111010
  Serious: Yes (Hospitalization)
  Sender: FDA-Public Use
  Company Number: US-PFIZER INC-2010126722

PATIENT
  Sex: Female
  Weight: 60.33 kg

DRUGS (12)
  1. FORTEO [Suspect]
     Dosage: 20 UG, 1X/DAY
     Route: 058
  2. ACETYLSALICYLIC ACID [Concomitant]
     Dosage: UNK
  3. ARIMIDEX [Suspect]
     Indication: BREAST CANCER
     Dosage: 1 MG, 1X/DAY
     Dates: start: 20051213, end: 20100804
  4. LISINOPRIL [Suspect]
     Dosage: 40 MG, 1X/DAY
  5. SPIRIVA [Suspect]
     Dosage: ONE PUFF DAILY
  6. COLECALCIFEROL [Concomitant]
     Dosage: UNK
  7. FISH OIL, HYDROGENATED [Concomitant]
     Dosage: UNK
  8. NORVASC [Suspect]
     Dosage: 10 MG, 1X/DAY
  9. EFFEXOR XR [Suspect]
     Dosage: 150 MG, 1X/DAY
  10. NO SUBJECT DRUG [Suspect]
     Indication: BREAST CANCER
     Dosage: NO DOSE GIVEN
  11. HYDROCHLOROTHIAZIDE [Suspect]
     Dosage: 25 MG, 1X/DAY
  12. ASCORBIC ACID [Concomitant]
     Dosage: UNK

REACTIONS (7)
  - RESTRICTIVE CARDIOMYOPATHY [None]
  - MYOCARDIAL INFARCTION [None]
  - BUNDLE BRANCH BLOCK LEFT [None]
  - CARDIAC FAILURE CONGESTIVE [None]
  - TROPONIN INCREASED [None]
  - MYOCARDIAL ISCHAEMIA [None]
  - HYPOXIA [None]
